FAERS Safety Report 4928105-7 (Version None)
Quarter: 2006Q1

REPORT INFORMATION
  Report Type: 
  Country: None (occurrence: None)
  Receive Date: 20060223
  Receipt Date: 20060207
  Transmission Date: 20060701
  Serious: Yes (Hospitalization)
  Sender: FDA-Public Use
  Company Number: DSA_27761_2006

PATIENT
  Age: 62 Year
  Sex: Female

DRUGS (2)
  1. ENALAPRIL MALEATE [Suspect]
     Dosage: DF
  2. ATORVASTATIN CALCIUM [Concomitant]

REACTIONS (14)
  - ALVEOLITIS ALLERGIC [None]
  - COUGH [None]
  - DRUG HYPERSENSITIVITY [None]
  - DYSPNOEA [None]
  - EOSINOPHILIA [None]
  - HEPATIC ENZYME INCREASED [None]
  - HEPATITIS CHOLESTATIC [None]
  - HEPATOMEGALY [None]
  - HEPATOTOXICITY [None]
  - PULMONARY TOXICITY [None]
  - PYREXIA [None]
  - RALES [None]
  - RASH MACULO-PAPULAR [None]
  - WHITE BLOOD CELL COUNT INCREASED [None]
